FAERS Safety Report 8342652-X (Version None)
Quarter: 2012Q2

REPORT INFORMATION
  Report Type: 
  Country: None (occurrence: None)
  Receive Date: 20120508
  Receipt Date: 20100123
  Transmission Date: 20120825
  Serious: No
  Sender: FDA-Public Use
  Company Number: 2010BI003010

PATIENT
  Sex: Female

DRUGS (2)
  1. TYSABRI [Suspect]
     Route: 042
     Dates: start: 20100203
  2. TYSABRI [Suspect]
     Indication: MULTIPLE SCLEROSIS
     Route: 042
     Dates: start: 20070126, end: 20090226

REACTIONS (2)
  - HEADACHE [None]
  - WHITE BLOOD CELL COUNT INCREASED [None]
